FAERS Safety Report 25967508 (Version 2)
Quarter: 2025Q4

REPORT INFORMATION
  Report Type: Spontaneous
  Country: US (occurrence: US)
  Receive Date: 20251028
  Receipt Date: 20251107
  Transmission Date: 20260117
  Serious: Yes (Life-Threatening, Hospitalization)
  Sender: DR REDDYS
  Company Number: None

PATIENT
  Age: 18 Year
  Sex: Female

DRUGS (13)
  1. CLOZAPINE [Suspect]
     Active Substance: CLOZAPINE
     Indication: Product used for unknown indication
     Dosage: INDUCTION THERAPY
  2. CLOZAPINE [Suspect]
     Active Substance: CLOZAPINE
     Indication: Defiant behaviour
     Dosage: CLOZAPINE WAS DECREASED FROM 62.5 TO 50 MG DAILY DUE TO SOMNOLANCE.
  3. CLOZAPINE [Suspect]
     Active Substance: CLOZAPINE
     Indication: Agitation
     Dosage: DOSE INCREASED TO 62.5 MG DAILY
  4. VALPROIC ACID [Suspect]
     Active Substance: VALPROIC ACID
     Indication: Product used for unknown indication
     Dosage: 1-9 ON DAY 4
  5. VALPROIC ACID [Suspect]
     Active Substance: VALPROIC ACID
     Indication: Agitation
  6. ACETYLCYSTEINE [Concomitant]
     Active Substance: ACETYLCYSTEINE
     Indication: Antipsychotic therapy
  7. CLONIDINE [Concomitant]
     Active Substance: CLONIDINE
     Indication: Antipsychotic therapy
  8. OXCARBAZEPINE [Concomitant]
     Active Substance: OXCARBAZEPINE
     Indication: Antipsychotic therapy
  9. LORAZEPAM [Concomitant]
     Active Substance: LORAZEPAM
     Indication: Antipsychotic therapy
     Dosage: 1.5 MG EACH MORNING/1.5 MG MIDDAY/2 MG AT BEDTIME
  10. FLUOXETINE [Concomitant]
     Active Substance: FLUOXETINE HYDROCHLORIDE
     Indication: Antipsychotic therapy
  11. HALOPERIDOL [Concomitant]
     Active Substance: HALOPERIDOL
     Indication: Antipsychotic therapy
  12. MELATONIN [Concomitant]
     Active Substance: MELATONIN
     Indication: Antipsychotic therapy
  13. DEXMEDETOMIDINE [Concomitant]
     Active Substance: DEXMEDETOMIDINE
     Indication: Agitation

REACTIONS (4)
  - Myocarditis [Recovered/Resolved]
  - Somnolence [Unknown]
  - Orthostatic hypotension [Recovering/Resolving]
  - Pericardial effusion [Recovering/Resolving]
